FAERS Safety Report 7032782-7 (Version None)
Quarter: 2010Q4

REPORT INFORMATION
  Report Type: 
  Country: None (occurrence: None)
  Receive Date: 20101007
  Receipt Date: 20090709
  Transmission Date: 20110411
  Serious: Yes (Hospitalization)
  Sender: FDA-Public Use
  Company Number: US-SANOFI-AVENTIS-200914661GDDC

PATIENT
  Age: 55 Year
  Sex: Female
  Weight: 110.9 kg

DRUGS (25)
  1. DOCETAXEL [Suspect]
     Route: 042
     Dates: start: 20081120, end: 20090421
  2. BEVACIZUMAB [Suspect]
     Route: 042
     Dates: start: 20081120, end: 20090421
  3. OMEPRAZOLE [Concomitant]
     Route: 048
     Dates: start: 20050201
  4. LISINOPRIL [Concomitant]
     Indication: HYPERTENSION
     Dosage: DOSE AS USED: 20/25 MG
     Route: 048
     Dates: start: 20030201
  5. LISINOPRIL [Concomitant]
     Route: 048
     Dates: start: 20090112
  6. LEVOTHYROXINE [Concomitant]
     Indication: HYPOTHYROIDISM
     Route: 048
     Dates: start: 19880101
  7. AMLODIPINE BESYLATE AND BENAZEPRIL HYDROCHLORIDE [Concomitant]
     Indication: HYPERTENSION
     Route: 048
     Dates: start: 19980101
  8. ETODOLAC [Concomitant]
     Dosage: DOSE AS USED: 400 TID MG
     Route: 048
     Dates: start: 20080501
  9. METFORMIN [Concomitant]
     Indication: DIABETES MELLITUS
     Route: 048
     Dates: start: 20050201
  10. METFORMIN [Concomitant]
     Route: 048
     Dates: start: 20090113
  11. PARACETAMOL [Concomitant]
     Dosage: DOSE AS USED: 500 X 2 TID MG
     Route: 048
     Dates: start: 20081125
  12. GUAIFENESIN [Concomitant]
     Dosage: DOSE AS USED: 100/8 QID MG/ML
     Route: 048
     Dates: start: 20081126
  13. GUAIFENESIN [Concomitant]
     Dosage: DOSE:1 TABLESPOON(S)
     Dates: start: 20090501
  14. ATROPINE SULFATE/DIPHENOXYLATE HYDROCHLORIDE [Concomitant]
     Route: 048
     Dates: start: 20081219
  15. ATROPINE SULFATE/DIPHENOXYLATE HYDROCHLORIDE [Concomitant]
     Route: 048
     Dates: start: 20090421
  16. DEXAMETHASONE [Concomitant]
     Indication: PREMEDICATION
     Dosage: DOSE AS USED: 8 MG 12 HOURS BEFORE AND AFTER CHEMOTHERAPY MG
     Route: 048
     Dates: start: 20081119, end: 20090217
  17. DEXAMETHASONE [Concomitant]
     Dosage: DOSE AS USED: 4 MG 12 HOURS BEFORE AND AFTER CHEMOTHERAPY MG
     Route: 048
     Dates: start: 20090217
  18. ADVIL LIQUI-GELS [Concomitant]
     Route: 048
     Dates: start: 20090220
  19. CEPHALEXIN [Concomitant]
     Dosage: DOSE AS USED: 500 X 10 DAYS MG
     Route: 048
     Dates: start: 20090223, end: 20090305
  20. LORTAB [Concomitant]
     Indication: PAIN
     Dosage: DOSE AS USED: 5/500 MG
     Route: 048
     Dates: start: 20090128
  21. CIPROFLOXACIN [Concomitant]
     Dosage: DOSE AS USED: 500 MG X 5 DAYS MG
     Route: 048
     Dates: start: 20090427, end: 20090503
  22. CIPROFLOXACIN [Concomitant]
     Indication: PRODUCTIVE COUGH
     Dosage: DOSE AS USED: 500 MG X 5 DAYS MG
     Route: 048
     Dates: start: 20090427, end: 20090503
  23. MUCINEX [Concomitant]
     Dosage: DOSE AS USED: 1 TABLET QID
     Route: 048
     Dates: start: 20090427, end: 20090430
  24. TESSALON [Concomitant]
     Dosage: DOSE AS USED: 200 X 10 DAYS MG
     Route: 048
     Dates: start: 20090430
  25. AMOXICILLIN [Concomitant]
     Dosage: DOSE AS USED: 500 MG X 10 DAYS MG
     Route: 048
     Dates: start: 20090501

REACTIONS (3)
  - ATAXIA [None]
  - DYSPNOEA [None]
  - PLEURAL EFFUSION [None]
